FAERS Safety Report 5365467-3 (Version None)
Quarter: 2007Q2

REPORT INFORMATION
  Report Type: 
  Country: None (occurrence: None)
  Receive Date: 20070530
  Receipt Date: 20070322
  Transmission Date: 20071010
  Serious: No
  Sender: FDA-Public Use
  Company Number: 2006PV023873

PATIENT
  Age: 66 Year
  Sex: Female
  Weight: 108.8633 kg

DRUGS (5)
  1. BYETTA [Suspect]
     Indication: DIABETES MELLITUS NON-INSULIN-DEPENDENT
     Dosage: 5 MCG; BID; SC
     Route: 058
     Dates: start: 20061023
  2. BYETTA [Suspect]
     Indication: DIABETES MELLITUS NON-INSULIN-DEPENDENT
     Dosage: 5 MCG; BID; SC
     Route: 058
     Dates: start: 20070321
  3. METFORMIN HCL [Concomitant]
  4. ARIMIDEX [Concomitant]
  5. PRANDIN [Concomitant]

REACTIONS (9)
  - BLOOD GLUCOSE INCREASED [None]
  - DEPRESSED MOOD [None]
  - DRUG INEFFECTIVE [None]
  - HYPERHIDROSIS [None]
  - INJECTION SITE PAIN [None]
  - INSOMNIA [None]
  - NAUSEA [None]
  - TREMOR [None]
  - WEIGHT DECREASED [None]
